FAERS Safety Report 23876278 (Version 4)
Quarter: 2024Q4

REPORT INFORMATION
  Report Type: Report from Study
  Country: JP (occurrence: JP)
  Receive Date: 20240520
  Receipt Date: 20241218
  Transmission Date: 20250114
  Serious: Yes (Other)
  Sender: GLAXOSMITHKLINE
  Company Number: JP-GSK-JP2024JPN062042

PATIENT

DRUGS (30)
  1. BELIMUMAB [Suspect]
     Active Substance: BELIMUMAB
     Indication: Systemic lupus erythematosus
     Dosage: 8.6 MG/KG
     Dates: start: 20231025, end: 20231025
  2. BELIMUMAB [Suspect]
     Active Substance: BELIMUMAB
     Dosage: 8.4 MG/KG, Q2W
     Dates: start: 20231108, end: 20231108
  3. BELIMUMAB [Suspect]
     Active Substance: BELIMUMAB
     Dosage: 8.3 MG/KG, Q2W
     Dates: start: 20231122, end: 20231122
  4. BELIMUMAB [Suspect]
     Active Substance: BELIMUMAB
     Dosage: 7.8 MG/KG, Q4W
     Dates: start: 20231220, end: 20231220
  5. BELIMUMAB [Suspect]
     Active Substance: BELIMUMAB
     Dosage: 7.7 MG/KG, Q4W
     Dates: start: 20240117, end: 20240117
  6. BELIMUMAB [Suspect]
     Active Substance: BELIMUMAB
     Dosage: 10 MG/KG, Q4W
     Dates: start: 20240214, end: 20240214
  7. BELIMUMAB [Suspect]
     Active Substance: BELIMUMAB
     Dosage: 7.6 MG/KG, Q4W
     Dates: start: 20240313, end: 20240313
  8. BELIMUMAB [Suspect]
     Active Substance: BELIMUMAB
     Dosage: 7.7 MG/KG, Q4W
     Dates: start: 20240410, end: 20240410
  9. BELIMUMAB [Suspect]
     Active Substance: BELIMUMAB
     Dosage: 10 MG/KG, Q4W
     Dates: start: 20240508
  10. TACROLIMUS [Suspect]
     Active Substance: TACROLIMUS
     Indication: Systemic lupus erythematosus
     Dosage: UNK
  11. PREDONINE [Suspect]
     Active Substance: PREDNISOLONE
     Indication: Systemic lupus erythematosus
     Dosage: 20 MG
     Route: 048
     Dates: end: 20231108
  12. PREDONINE [Suspect]
     Active Substance: PREDNISOLONE
     Dosage: 17.5 MG
     Route: 048
     Dates: start: 20231109, end: 20231122
  13. PREDONINE [Suspect]
     Active Substance: PREDNISOLONE
     Dosage: 15 MG
     Route: 048
     Dates: start: 20231123, end: 20231205
  14. PREDONINE [Suspect]
     Active Substance: PREDNISOLONE
     Dosage: 12.5 MG
     Route: 048
     Dates: start: 20231206, end: 20231220
  15. PREDONINE [Suspect]
     Active Substance: PREDNISOLONE
     Dosage: 10 MG
     Route: 048
     Dates: start: 20231221, end: 20240313
  16. PREDONINE [Suspect]
     Active Substance: PREDNISOLONE
     Dosage: 20 MG
     Route: 048
     Dates: start: 20240314, end: 20240604
  17. PREDONINE [Suspect]
     Active Substance: PREDNISOLONE
     Dosage: 17.5 MG
     Route: 048
     Dates: start: 20240605, end: 20240702
  18. PREDONINE [Suspect]
     Active Substance: PREDNISOLONE
     Dosage: 15 MG
     Route: 048
     Dates: start: 20240703, end: 20240806
  19. PREDONINE [Suspect]
     Active Substance: PREDNISOLONE
     Dosage: 12.5 MG
     Route: 048
     Dates: start: 20240807, end: 20240903
  20. PREDONINE [Suspect]
     Active Substance: PREDNISOLONE
     Dosage: 10 MG
     Route: 048
     Dates: start: 20240904, end: 20241001
  21. PREDONINE [Suspect]
     Active Substance: PREDNISOLONE
     Dosage: 5 MG
     Route: 048
     Dates: start: 20241002
  22. PLAQUENIL [Suspect]
     Active Substance: HYDROXYCHLOROQUINE SULFATE
     Indication: Systemic lupus erythematosus
     Dosage: UNK
  23. SOLU-MEDROL [Concomitant]
     Active Substance: METHYLPREDNISOLONE SODIUM SUCCINATE
     Indication: Systemic lupus erythematosus
     Dosage: UNK
  24. CANDESARTAN [Concomitant]
     Active Substance: CANDESARTAN
     Indication: Gastrointestinal disorder prophylaxis
     Dosage: UNK
  25. ONEALFA [Concomitant]
     Active Substance: ALFACALCIDOL
     Indication: Osteoporosis prophylaxis
     Dosage: UNK
  26. FAMOTIDINE [Concomitant]
     Active Substance: FAMOTIDINE
     Indication: Gastritis prophylaxis
     Dosage: UNK
  27. CELLCEPT [Concomitant]
     Active Substance: MYCOPHENOLATE MOFETIL
     Indication: Systemic lupus erythematosus
     Dosage: UNK
  28. FERROUS SULFATE [Concomitant]
     Active Substance: FERROUS SULFATE
     Dosage: UNK
  29. ALLEGRA [Concomitant]
     Active Substance: FEXOFENADINE HYDROCHLORIDE
     Dosage: UNK
  30. PREDNISOLONE [Concomitant]
     Active Substance: PREDNISOLONE
     Indication: Systemic lupus erythematosus
     Dosage: 4 MG
     Route: 048
     Dates: start: 20241002

REACTIONS (8)
  - Glaucoma [Not Recovered/Not Resolved]
  - Acne [Recovered/Resolved]
  - Lip swelling [Recovered/Resolved]
  - Cystitis [Recovered/Resolved]
  - Acne [Recovered/Resolved]
  - Cystitis [Recovering/Resolving]
  - Prescribed underdose [Unknown]
  - Off label use [Unknown]

NARRATIVE: CASE EVENT DATE: 20231107
